FAERS Safety Report 22303047 (Version 1)
Quarter: 2023Q2

REPORT INFORMATION
  Report Type: Spontaneous
  Country: US (occurrence: US)
  Receive Date: 20230510
  Receipt Date: 20230510
  Transmission Date: 20230721
  Serious: Yes (Other)
  Sender: FDA-Public Use
  Company Number: US-SA-SAC20230509001145

PATIENT
  Age: 21 Year
  Sex: Male

DRUGS (2)
  1. ELOCTATE [Suspect]
     Active Substance: EFMOROCTOCOG ALFA
     Indication: Factor VIII deficiency
     Dosage: 4000 U PRN (STRENGTH: 4000 U AND 5000 (UNITS NOT PROVIDED)
     Route: 042
     Dates: start: 202302
  2. ELOCTATE [Suspect]
     Active Substance: EFMOROCTOCOG ALFA
     Indication: Factor VIII deficiency
     Dosage: 4000 U PRN (STRENGTH: 4000 U AND 5000 (UNITS NOT PROVIDED)
     Route: 042
     Dates: start: 202302

REACTIONS (1)
  - Spontaneous haemorrhage [Not Recovered/Not Resolved]

NARRATIVE: CASE EVENT DATE: 20230421
